FAERS Safety Report 13932289 (Version 2)
Quarter: 2017Q4

REPORT INFORMATION
  Report Type: Spontaneous
  Country: US (occurrence: US)
  Receive Date: 20170904
  Receipt Date: 20171017
  Transmission Date: 20180320
  Serious: No
  Sender: FDA-Public Use
  Company Number: US-PFIZER INC-2017380541

PATIENT
  Age: 58 Year
  Sex: Female
  Weight: 63.5 kg

DRUGS (2)
  1. ADVIL [Suspect]
     Active Substance: IBUPROFEN
     Indication: MIGRAINE
     Dosage: 200 MG TWO LIQUIGELS AND THEN 15 MINUTES LATER, TOOK ONE MORE
     Route: 048
     Dates: start: 201708, end: 201708
  2. ADVIL [Suspect]
     Active Substance: IBUPROFEN
     Indication: MIGRAINE WITH AURA

REACTIONS (2)
  - Inappropriate schedule of drug administration [Unknown]
  - Drug ineffective [Unknown]

NARRATIVE: CASE EVENT DATE: 201708
